FAERS Safety Report 21108309 (Version 1)
Quarter: 2022Q3

REPORT INFORMATION
  Report Type: Spontaneous
  Country: US (occurrence: US)
  Receive Date: 20220720
  Receipt Date: 20220720
  Transmission Date: 20221026
  Serious: No
  Sender: FDA-Public Use
  Company Number: US-SA-SAC20220718000520

PATIENT
  Sex: Female

DRUGS (2)
  1. AMBIEN [Suspect]
     Active Substance: ZOLPIDEM TARTRATE
     Indication: Sleep disorder
     Dosage: 1 DF, QD
     Route: 065
  2. AMBIEN [Suspect]
     Active Substance: ZOLPIDEM TARTRATE
     Dosage: 2 DF, QD

REACTIONS (2)
  - Product dose omission in error [Unknown]
  - Product use issue [Unknown]
